FAERS Safety Report 20995327 (Version 4)
Quarter: 2022Q3

REPORT INFORMATION
  Report Type: Spontaneous
  Country: RU (occurrence: RU)
  Receive Date: 20220622
  Receipt Date: 20220722
  Transmission Date: 20221027
  Serious: Yes (Other)
  Sender: FDA-Public Use
  Company Number: RU-NOVARTISPH-NVSC2022RU142882

PATIENT

DRUGS (16)
  1. OXALIPLATIN [Suspect]
     Active Substance: OXALIPLATIN
     Indication: Rectal adenocarcinoma
     Dosage: UNK COURSE 1 (85 MG/M2 FOR 2 HOURS ON DAY 1)
     Route: 041
     Dates: start: 20170505
  2. OXALIPLATIN [Suspect]
     Active Substance: OXALIPLATIN
     Dosage: UNK, COURSE 2
     Route: 041
     Dates: start: 20170519
  3. OXALIPLATIN [Suspect]
     Active Substance: OXALIPLATIN
     Dosage: UNK, COURSE 3
     Route: 041
     Dates: start: 20170602
  4. OXALIPLATIN [Suspect]
     Active Substance: OXALIPLATIN
     Dosage: UNK, COURSE 4
     Route: 041
     Dates: start: 20170616
  5. OXALIPLATIN [Suspect]
     Active Substance: OXALIPLATIN
     Dosage: UNK, DOSE REDUCED BY 25 PERCENT
     Route: 041
  6. LEUCOVORIN [Suspect]
     Active Substance: LEUCOVORIN
     Indication: Rectal adenocarcinoma
     Dosage: 400 MG/M2 FOR 2 HOURS (COURSE 1)
     Route: 065
     Dates: start: 20170505
  7. LEUCOVORIN [Suspect]
     Active Substance: LEUCOVORIN
     Dosage: UNK (COURSE 2)
     Route: 065
     Dates: start: 20170519
  8. LEUCOVORIN [Suspect]
     Active Substance: LEUCOVORIN
     Dosage: UNK UNK (COURSE 3)
     Route: 065
     Dates: start: 20170602
  9. LEUCOVORIN [Suspect]
     Active Substance: LEUCOVORIN
     Dosage: UNK (COURSE 4)
     Route: 065
     Dates: start: 20170616
  10. LEUCOVORIN [Suspect]
     Active Substance: LEUCOVORIN
     Dosage: UNK, DOSE REDUCED BY 25 PERCENT
     Route: 065
  11. FLUOROURACIL [Suspect]
     Active Substance: FLUOROURACIL
     Indication: Rectal adenocarcinoma
     Dosage: 400 MG/M2, CYCLIC
     Route: 040
     Dates: start: 20170505
  12. FLUOROURACIL [Suspect]
     Active Substance: FLUOROURACIL
     Dosage: 2400 MG/M2 A 46-HOUR INFUSION
     Route: 041
     Dates: start: 20170505
  13. FLUOROURACIL [Suspect]
     Active Substance: FLUOROURACIL
     Dosage: UNK, COURSE 2
     Route: 041
     Dates: start: 20170519
  14. FLUOROURACIL [Suspect]
     Active Substance: FLUOROURACIL
     Dosage: UNK, COURSE 3
     Route: 041
     Dates: start: 20170602
  15. FLUOROURACIL [Suspect]
     Active Substance: FLUOROURACIL
     Dosage: UNK, COURSE 4
     Route: 041
     Dates: start: 20170616
  16. FLUOROURACIL [Suspect]
     Active Substance: FLUOROURACIL
     Dosage: UNK, DOSE REDUCED BY 25 PERCENT
     Route: 041

REACTIONS (1)
  - Hepatotoxicity [Recovered/Resolved]
